FAERS Safety Report 4381573-4 (Version None)
Quarter: 2004Q2

REPORT INFORMATION
  Report Type: 
  Country: None (occurrence: None)
  Receive Date: 20040616
  Receipt Date: 20040604
  Transmission Date: 20050107
  Serious: Yes (Hospitalization)
  Sender: FDA-Public Use
  Company Number: 01P-163-0185076-00

PATIENT
  Age: 95 Year
  Sex: Female
  Weight: 65.7716 kg

DRUGS (6)
  1. SYNTHROID [Suspect]
     Indication: HYPOTHYROIDISM
     Dosage: 88 MCG, 1 IN 1 D, ORAL
     Route: 048
     Dates: start: 20010617
  2. LISINOPRIL [Suspect]
     Indication: BLOOD PRESSURE INCREASED
     Dosage: 10 MG, 1 IN 1 D, PER ORAL
     Route: 048
  3. METOPROLOL SUCCINATE [Suspect]
     Indication: CARDIAC DISORDER
     Dosage: 25 MG, 1 IN 1 D, PER ORAL
     Route: 048
  4. ASPIRIN [Concomitant]
  5. CYANOCOBALAMIN [Concomitant]
  6. MULTI-VITAMINS [Concomitant]

REACTIONS (11)
  - BLOOD PRESSURE INCREASED [None]
  - BRONCHITIS [None]
  - COMA [None]
  - CYANOSIS [None]
  - HEART RATE INCREASED [None]
  - HOARSENESS [None]
  - HYPOTENSION [None]
  - OEDEMA PERIPHERAL [None]
  - PAIN IN EXTREMITY [None]
  - RASH SCALY [None]
  - TREMOR [None]
